FAERS Safety Report 6722674-2 (Version None)
Quarter: 2010Q2

REPORT INFORMATION
  Report Type: 
  Country: None (occurrence: None)
  Receive Date: 20100512
  Receipt Date: 20100429
  Transmission Date: 20101027
  Serious: Yes (Other)
  Sender: FDA-Public Use
  Company Number: US-PFIZER INC-2009297527

PATIENT
  Sex: Male

DRUGS (2)
  1. GLUCOTROL XL [Suspect]
  2. NORVASC [Suspect]

REACTIONS (3)
  - BLOOD GLUCOSE DECREASED [None]
  - HUNGER [None]
  - TOOTH DISORDER [None]
